FAERS Safety Report 9359913 (Version 1)
Quarter: 2013Q2

REPORT INFORMATION
  Report Type: Spontaneous
  Country: US (occurrence: None)
  Receive Date: 20130608
  Receipt Date: 20130608
  Transmission Date: 20140414
  Serious: No
  Sender: FDA-Public Use
  Company Number: 2013CT000011

PATIENT
  Age: 48 Year
  Sex: Female

DRUGS (4)
  1. KORLYM [Suspect]
     Indication: CUSHING^S SYNDROME
     Route: 048
     Dates: start: 201209
  2. INSULIN [Concomitant]
  3. LISINOPRIL [Concomitant]
  4. CORTISOL [Concomitant]

REACTIONS (17)
  - Urinary tract infection [None]
  - Back pain [None]
  - Myalgia [None]
  - Arthralgia [None]
  - Vomiting [None]
  - Fatigue [None]
  - Weight decreased [None]
  - Blood pressure increased [None]
  - Joint injury [None]
  - Dizziness [None]
  - Insomnia [None]
  - Musculoskeletal stiffness [None]
  - Oedema peripheral [None]
  - Nausea [None]
  - Neuralgia [None]
  - Blood potassium decreased [None]
  - Muscular weakness [None]
